FAERS Safety Report 7997329-7 (Version None)
Quarter: 2011Q4

REPORT INFORMATION
  Report Type: 
  Country: None (occurrence: None)
  Receive Date: 20111221
  Receipt Date: 20111213
  Transmission Date: 20120403
  Serious: Yes (Other)
  Sender: FDA-Public Use
  Company Number: US-JNJFOC-20111206496

PATIENT
  Sex: Female
  Weight: 58.97 kg

DRUGS (2)
  1. FENTANYL-100 [Suspect]
     Indication: PAIN
     Route: 062
     Dates: start: 20111101
  2. NORCO [Suspect]
     Indication: PAIN
     Dosage: 5/325 MG AS NEEDED 4 X DAILY
     Route: 065
     Dates: start: 20111101

REACTIONS (6)
  - RESPIRATORY DISORDER [None]
  - BEDRIDDEN [None]
  - ANXIETY [None]
  - INSOMNIA [None]
  - PRODUCT QUALITY ISSUE [None]
  - PAIN [None]
